FAERS Safety Report 7071556-8 (Version None)
Quarter: 2010Q4

REPORT INFORMATION
  Report Type: 
  Country: None (occurrence: None)
  Receive Date: 20101029
  Receipt Date: 20090922
  Transmission Date: 20110411
  Serious: No
  Sender: FDA-Public Use
  Company Number: A0808483A

PATIENT
  Age: 85 Year
  Sex: Female

DRUGS (7)
  1. ADVAIR DISKUS 100/50 [Suspect]
     Indication: ASTHMA
     Route: 055
     Dates: start: 20090901
  2. NEXIUM [Suspect]
     Indication: PRODUCT USED FOR UNKNOWN INDICATION
     Route: 048
  3. VERAPAMIL [Concomitant]
  4. PREMARIN [Concomitant]
  5. PLAVIX [Concomitant]
  6. NEXIUM [Concomitant]
  7. SIMVASTATIN [Concomitant]

REACTIONS (2)
  - APHONIA [None]
  - DYSPHONIA [None]
